FAERS Safety Report 12825855 (Version 1)
Quarter: 2016Q4

REPORT INFORMATION
  Report Type: Spontaneous
  Country: US (occurrence: US)
  Receive Date: 20161006
  Receipt Date: 20161006
  Transmission Date: 20170207
  Serious: No
  Sender: FDA-Public Use
  Company Number: US-JAZZ-2016-US-012827

PATIENT
  Age: 59 Year
  Sex: Female

DRUGS (34)
  1. ACIPHEX DR [Concomitant]
  2. PROVENTIL HFA [Concomitant]
     Active Substance: ALBUTEROL SULFATE
  3. SEROQUEL XR [Concomitant]
     Active Substance: QUETIAPINE FUMARATE
  4. XYREM [Suspect]
     Active Substance: SODIUM OXYBATE
     Indication: CATAPLEXY
     Dosage: 4.5 G, BID
     Route: 048
     Dates: start: 201606
  5. POTASSIUM CITRATE ER [Concomitant]
  6. ASPIRIN ADULT [Concomitant]
  7. FLONASE [Concomitant]
     Active Substance: FLUTICASONE PROPIONATE
  8. MOBIC [Concomitant]
     Active Substance: MELOXICAM
  9. VITAMIN D3 [Concomitant]
     Active Substance: CHOLECALCIFEROL
  10. GABAPENTIN. [Concomitant]
     Active Substance: GABAPENTIN
  11. PLAQUENIL [Concomitant]
     Active Substance: HYDROXYCHLOROQUINE SULFATE
  12. ULTRAM [Concomitant]
     Active Substance: TRAMADOL HYDROCHLORIDE
  13. ELIDEL [Concomitant]
     Active Substance: PIMECROLIMUS
  14. MONTELUKAST SODIUM. [Concomitant]
     Active Substance: MONTELUKAST SODIUM
  15. PRISTIQ EXTENDED-RELEASE [Concomitant]
     Active Substance: DESVENLAFAXINE SUCCINATE
  16. XYREM [Suspect]
     Active Substance: SODIUM OXYBATE
     Indication: NARCOLEPSY
     Dosage: 2.25 G, BID
     Route: 048
     Dates: start: 201408, end: 201606
  17. BIOTIN [Concomitant]
     Active Substance: BIOTIN
  18. DULERA [Concomitant]
     Active Substance: FORMOTEROL FUMARATE DIHYDRATE\MOMETASONE FUROATE
  19. MAGNESIUM [Concomitant]
     Active Substance: MAGNESIUM
  20. PHOSPHATIDYL CHOLINE [Concomitant]
     Active Substance: LECITHIN
  21. FOLIC ACID. [Concomitant]
     Active Substance: FOLIC ACID
  22. TIROSINT [Concomitant]
     Active Substance: LEVOTHYROXINE SODIUM
  23. ATIVAN [Concomitant]
     Active Substance: LORAZEPAM
  24. METHOTREXATE. [Concomitant]
     Active Substance: METHOTREXATE
  25. CARISOPRODOL. [Concomitant]
     Active Substance: CARISOPRODOL
  26. LORAZEPAM. [Concomitant]
     Active Substance: LORAZEPAM
  27. CALCIUM ACETATE. [Concomitant]
     Active Substance: CALCIUM ACETATE
  28. VITAMIN C [Concomitant]
     Active Substance: ASCORBIC ACID
  29. BYSTOLIC [Concomitant]
     Active Substance: NEBIVOLOL HYDROCHLORIDE
  30. LINZESS [Concomitant]
     Active Substance: LINACLOTIDE
  31. MODAFINIL. [Concomitant]
     Active Substance: MODAFINIL
  32. SPIRONOLACTONE. [Concomitant]
     Active Substance: SPIRONOLACTONE
  33. KLONOPIN [Concomitant]
     Active Substance: CLONAZEPAM
  34. LACTAID FAST ACT [Concomitant]
     Active Substance: LACTASE

REACTIONS (5)
  - Lip injury [Unknown]
  - Joint injury [Unknown]
  - Crying [Unknown]
  - Contusion [Unknown]
  - Fall [Unknown]

NARRATIVE: CASE EVENT DATE: 20160708
